FAERS Safety Report 13397629 (Version 1)
Quarter: 2017Q2

REPORT INFORMATION
  Report Type: Spontaneous
  Country: GB (occurrence: GB)
  Receive Date: 20170403
  Receipt Date: 20170403
  Transmission Date: 20170830
  Serious: Yes (Other)
  Sender: FDA-Public Use
  Company Number: GB-TELIGENT, INC-IGIL20170115

PATIENT
  Age: 69 Year
  Sex: Female

DRUGS (2)
  1. POVIDONE-IODINE. [Concomitant]
     Active Substance: POVIDONE-IODINE
     Indication: PROPHYLAXIS
     Route: 061
  2. CEFUROXIME SODIUM. [Suspect]
     Active Substance: CEFUROXIME SODIUM
     Indication: PROPHYLAXIS
     Dosage: 10 MG/0.1 ML

REACTIONS (7)
  - Subretinal fluid [Recovered/Resolved]
  - Retinal detachment [Recovered/Resolved]
  - Macular detachment [Recovered/Resolved]
  - Retinal toxicity [Recovered/Resolved]
  - Ocular toxicity [Recovered/Resolved]
  - Cystoid macular oedema [Recovered/Resolved]
  - Maculopathy [Recovered/Resolved]
